FAERS Safety Report 4614037-0 (Version None)
Quarter: 2005Q1

REPORT INFORMATION
  Report Type: 
  Country: None (occurrence: None)
  Receive Date: 20050316
  Receipt Date: 20050301
  Transmission Date: 20050727
  Serious: Yes (Death)
  Sender: FDA-Public Use
  Company Number: DSA_70593_2005

PATIENT
  Sex: Female

DRUGS (3)
  1. PROPOXYPHENE HCL [Suspect]
     Dosage: DF
  2. BENADRYL ^ACHE^ [Suspect]
     Dosage: DF
  3. ZOLPIDEM TARTRATE [Suspect]
     Dosage: DF

REACTIONS (2)
  - COMPLETED SUICIDE [None]
  - DRUG TOXICITY [None]
